FAERS Safety Report 17084623 (Version 2)
Quarter: 2019Q4

REPORT INFORMATION
  Report Type: Spontaneous
  Country: ES (occurrence: ES)
  Receive Date: 20191127
  Receipt Date: 20191223
  Transmission Date: 20200122
  Serious: Yes (Other)
  Sender: FDA-Public Use
  Company Number: ES-GE HEALTHCARE LIFE SCIENCES-2019CSU005995

PATIENT

DRUGS (9)
  1. PROLIA [Concomitant]
     Active Substance: DENOSUMAB
  2. OMEPRAZOL [Concomitant]
     Active Substance: OMEPRAZOLE
  3. HIDROFEROL [Concomitant]
     Active Substance: CALCIFEDIOL
  4. PREDNISONA [Concomitant]
     Active Substance: PREDNISONE
  5. DOLQUINE [Concomitant]
     Active Substance: HYDROXYCHLOROQUINE SULFATE
  6. VIZAMYL [Suspect]
     Active Substance: FLUTEMETAMOL F-18
     Indication: POSITRON EMISSION TOMOGRAPHY-MAGNETIC RESONANCE IMAGING
     Dosage: 187.6 MBQ (5.07 MCI) / 1 MUMOL/24 HR, ONCE
     Route: 040
     Dates: start: 20191120, end: 20191120
  7. VIZAMYL [Suspect]
     Active Substance: FLUTEMETAMOL F-18
     Indication: DEMENTIA
  8. SALAGEN [Concomitant]
     Active Substance: PILOCARPINE HYDROCHLORIDE
  9. NATECAL [Concomitant]
     Active Substance: CALCIUM CARBONATE\CHOLECALCIFEROL

REACTIONS (4)
  - Erythema [Recovered/Resolved]
  - Flushing [Recovered/Resolved]
  - Feeling hot [Recovered/Resolved]
  - Rash [Recovered/Resolved]

NARRATIVE: CASE EVENT DATE: 20191120
